FAERS Safety Report 19755194 (Version 2)
Quarter: 2021Q4

REPORT INFORMATION
  Report Type: Report from Study
  Country: JP (occurrence: JP)
  Receive Date: 20210827
  Receipt Date: 20211013
  Transmission Date: 20220303
  Serious: Yes (Hospitalization)
  Sender: FDA-Public Use
  Company Number: JP-MYLANLABS-2021M1055406

PATIENT
  Age: 56 Year
  Sex: Female

DRUGS (1)
  1. PREDNISOLONE [Suspect]
     Active Substance: PREDNISOLONE
     Indication: Still^s disease
     Route: 065

REACTIONS (7)
  - Rebound effect [Unknown]
  - Condition aggravated [Unknown]
  - Still^s disease [Unknown]
  - Acute hepatic failure [Unknown]
  - Encephalopathy [Unknown]
  - Haemophagocytic lymphohistiocytosis [Unknown]
  - Disseminated intravascular coagulation [Unknown]
